FAERS Safety Report 12153136 (Version 1)
Quarter: 2016Q1

REPORT INFORMATION
  Report Type: Spontaneous
  Country: US (occurrence: US)
  Receive Date: 20160305
  Receipt Date: 20160305
  Transmission Date: 20160526
  Serious: No
  Sender: FDA-Public Use
  Company Number: US-JNJFOC-20160216952

PATIENT
  Sex: Female

DRUGS (2)
  1. SUDAFED 24 HOUR [Suspect]
     Active Substance: PSEUDOEPHEDRINE HYDROCHLORIDE
     Indication: PRODUCT USED FOR UNKNOWN INDICATION
     Dosage: 1 TABLET 6 HOURS APART
     Route: 048
     Dates: start: 20160217, end: 20160217
  2. SUDAFED 24 HOUR [Suspect]
     Active Substance: PSEUDOEPHEDRINE HYDROCHLORIDE
     Route: 048

REACTIONS (1)
  - Extra dose administered [Unknown]

NARRATIVE: CASE EVENT DATE: 20160217
